FAERS Safety Report 5364090-4 (Version None)
Quarter: 2007Q2

REPORT INFORMATION
  Report Type: 
  Country: None (occurrence: None)
  Receive Date: 20070620
  Receipt Date: 20070614
  Transmission Date: 20071010
  Serious: Yes (Hospitalization)
  Sender: FDA-Public Use
  Company Number: CH-ASTRAZENECA-2007PK01200

PATIENT
  Age: 64 Year
  Sex: Female

DRUGS (7)
  1. BELOC ZOK [Suspect]
     Indication: ATRIAL FIBRILLATION
     Route: 048
  2. BELOC ZOK [Interacting]
     Indication: ATRIAL FLUTTER
     Route: 048
  3. ACENOCOUMAROL [Concomitant]
     Indication: ATRIAL FIBRILLATION
     Route: 048
  4. ACENOCOUMAROL [Concomitant]
     Indication: ATRIAL FLUTTER
     Route: 048
  5. IRBESARTAN [Concomitant]
     Indication: ESSENTIAL HYPERTENSION
     Route: 048
  6. HYDROCHLOROTHIAZIDE [Concomitant]
     Indication: ESSENTIAL HYPERTENSION
     Route: 048
  7. DILZEM [Concomitant]
     Indication: ESSENTIAL HYPERTENSION
     Route: 048

REACTIONS (2)
  - ATRIAL FLUTTER [None]
  - DRUG INEFFECTIVE [None]
